FAERS Safety Report 14593395 (Version 3)
Quarter: 2020Q1

REPORT INFORMATION
  Report Type: Report from Study
  Country: JP (occurrence: JP)
  Receive Date: 20180302
  Receipt Date: 20200128
  Transmission Date: 20200409
  Serious: Yes (Other)
  Sender: FDA-Public Use
  Company Number: JP-OTSUKA-2018_005257

PATIENT
  Age: 43 Year
  Sex: Female
  Weight: 50 kg

DRUGS (8)
  1. TOLVAPTAN [Suspect]
     Active Substance: TOLVAPTAN
     Dosage: 15 MG, QD
     Route: 048
     Dates: start: 20160901, end: 20161231
  2. TOLVAPTAN [Suspect]
     Active Substance: TOLVAPTAN
     Dosage: 30 MG/DAY, DIVIDED INTO TWO DOSES (EACH DOSE UNKNOWN)
     Route: 048
     Dates: start: 20171001, end: 20171130
  3. TOLVAPTAN [Suspect]
     Active Substance: TOLVAPTAN
     Indication: CONGENITAL CYSTIC KIDNEY DISEASE
     Dosage: 30 MG/DAY, DIVIDED 2 DOSES (EACH DOSE UNKNOWN)
     Route: 048
     Dates: start: 20160330, end: 20160525
  4. TOLVAPTAN [Suspect]
     Active Substance: TOLVAPTAN
     Dosage: 37.5MG/DAY, DIVIDED INTO TWO DOSES (EACH DOSE UNKNOWN)
     Route: 048
     Dates: start: 20171201, end: 20180124
  5. NU-LOTAN [Concomitant]
     Active Substance: LOSARTAN POTASSIUM
     Indication: PRODUCT USED FOR UNKNOWN INDICATION
     Dosage: 12.5 MG, QD
     Route: 048
     Dates: start: 20160420, end: 20160628
  6. NU-LOTAN [Concomitant]
     Active Substance: LOSARTAN POTASSIUM
     Dosage: 25 MG, QD
     Route: 048
     Dates: start: 20160629
  7. TOLVAPTAN [Suspect]
     Active Substance: TOLVAPTAN
     Dosage: 60 MG/DAY, DIVIDED 2 DOSES (EACH DOSE UNKNOWN)
     Route: 048
     Dates: start: 20160126, end: 20160330
  8. TOLVAPTAN [Suspect]
     Active Substance: TOLVAPTAN
     Dosage: 22.5 MG/DAY, DIVIDED INTO TWO DOSES (EACH DOSE UNKNOWN)
     Route: 048
     Dates: start: 20170101, end: 20170930

REACTIONS (3)
  - Inappropriate schedule of product administration [Unknown]
  - Blood creatine phosphokinase increased [Unknown]
  - Liver disorder [Recovering/Resolving]

NARRATIVE: CASE EVENT DATE: 20160525
